FAERS Safety Report 5565914-8 (Version None)
Quarter: 2007Q4

REPORT INFORMATION
  Report Type: 
  Country: None (occurrence: None)
  Receive Date: 20071213
  Receipt Date: 20071123
  Transmission Date: 20080405
  Serious: Yes (Hospitalization)
  Sender: FDA-Public Use
  Company Number: 163639ISR

PATIENT
  Age: 56 Year
  Sex: Female

DRUGS (4)
  1. FLUOROURACIL [Suspect]
     Indication: BREAST CANCER IN SITU
     Dosage: INTRAVENOUS DRIP
     Route: 041
     Dates: start: 20060807, end: 20061213
  2. CYCLOPHOSPHAMIDE [Suspect]
     Indication: BREAST CANCER IN SITU
     Dosage: INTRAVENOUS DRIP
     Route: 041
     Dates: start: 20060807, end: 20061213
  3. EPIRUBICIN [Suspect]
     Dosage: INTRAVENOUS DRIP
     Route: 041
     Dates: start: 20060807, end: 20061213
  4. DOCETAXEL [Suspect]
     Dosage: INTRAVENOUS DRIP
     Route: 041
     Dates: start: 20060807, end: 20061213

REACTIONS (3)
  - ARTHRALGIA [None]
  - SECONDARY IMMUNODEFICIENCY [None]
  - TUBERCULOSIS [None]
